FAERS Safety Report 4336069-2 (Version None)
Quarter: 2004Q2

REPORT INFORMATION
  Report Type: 
  Country: None (occurrence: None)
  Receive Date: 20040406
  Receipt Date: 20040324
  Transmission Date: 20050107
  Serious: Yes (Death)
  Sender: FDA-Public Use
  Company Number: 200408997

PATIENT
  Age: 90 Year
  Sex: Female

DRUGS (8)
  1. STREPTASE [Suspect]
     Indication: ACUTE MYOCARDIAL INFARCTION
     Dosage: 1.5 MIU DAILY IV
     Route: 042
     Dates: start: 20040128, end: 20040128
  2. ASPIRIN [Suspect]
     Indication: ROUTINE HEALTH MAINTENANCE
  3. ENOXAPARIN SODIUM [Suspect]
     Indication: ACUTE MYOCARDIAL INFARCTION
     Dosage: IV
     Route: 042
     Dates: start: 20040128, end: 20040128
  4. FUROSEMIDE [Concomitant]
  5. OMEPRAZOLE [Concomitant]
  6. FERROUS SULFATE TAB [Concomitant]
  7. CEFTRIAXONE [Concomitant]
  8. THYROXIN [Concomitant]

REACTIONS (8)
  - BLOOD PRESSURE DIASTOLIC DECREASED [None]
  - CARDIAC ARREST [None]
  - CARDIAC FAILURE [None]
  - GENERAL PHYSICAL HEALTH DETERIORATION [None]
  - HAEMATEMESIS [None]
  - HYPOTENSION [None]
  - INCONTINENCE [None]
  - RESPIRATORY RATE INCREASED [None]
